FAERS Safety Report 4506522-7 (Version None)
Quarter: 2004Q4

REPORT INFORMATION
  Report Type: 
  Country: None (occurrence: None)
  Receive Date: 20041122
  Receipt Date: 20040407
  Transmission Date: 20050328
  Serious: Yes (Other)
  Sender: FDA-Public Use
  Company Number: 200411276JP

PATIENT
  Age: 75 Year
  Sex: Male
  Weight: 68.9 kg

DRUGS (10)
  1. ARAVA [Suspect]
     Indication: RHEUMATOID ARTHRITIS
     Route: 048
     Dates: start: 20031120, end: 20040204
  2. RIMATIL [Concomitant]
     Indication: RHEUMATOID ARTHRITIS
     Route: 048
  3. METHOTREXATE [Concomitant]
     Indication: RHEUMATOID ARTHRITIS
     Dosage: DOSE: 5-6MG/WEEK
     Route: 048
     Dates: start: 20020124
  4. PREDONINE [Concomitant]
     Indication: RHEUMATOID ARTHRITIS
     Route: 048
  5. NORVASC [Concomitant]
     Indication: HYPERTENSION
     Route: 048
  6. TORSEMIDE [Concomitant]
     Indication: HYPERTENSION
     Route: 048
  7. CALFINA [Concomitant]
     Indication: OSTEOPOROSIS
     Route: 048
  8. GASTER [Concomitant]
     Indication: GASTRIC DISORDER
     Route: 048
  9. GASTER [Concomitant]
     Indication: PROPHYLAXIS
     Route: 048
  10. BAYASPIRIN [Concomitant]
     Route: 048

REACTIONS (8)
  - ALANINE AMINOTRANSFERASE INCREASED [None]
  - ASPARTATE AMINOTRANSFERASE INCREASED [None]
  - BLOOD ALKALINE PHOSPHATASE INCREASED [None]
  - BLOOD GLUCOSE INCREASED [None]
  - BLOOD LACTATE DEHYDROGENASE INCREASED [None]
  - C-REACTIVE PROTEIN INCREASED [None]
  - RASH [None]
  - WHITE BLOOD CELL COUNT DECREASED [None]
